FAERS Safety Report 19839908 (Version 1)
Quarter: 2021Q3

REPORT INFORMATION
  Report Type: Spontaneous
  Country: US (occurrence: US)
  Receive Date: 20210915
  Receipt Date: 20210915
  Transmission Date: 20211014
  Serious: Yes (Death)
  Sender: FDA-Public Use
  Company Number: None

PATIENT
  Age: 75 Year
  Sex: Male

DRUGS (11)
  1. ASPIRIN TAB 325MG [Concomitant]
  2. DIAZEPAM TAB 5MG [Concomitant]
  3. METFORMIN TAB 500MG ER [Concomitant]
  4. MINOCYCLINE TAB 45MG ER [Concomitant]
  5. RANEXA TAB 500MG [Concomitant]
  6. BRILINTA TAB 90MG [Concomitant]
  7. ISOSORB MONO TAB 30MG ER [Concomitant]
  8. ROSUVASTATIN TAB 40MG [Concomitant]
     Active Substance: ROSUVASTATIN
  9. ESBRIET [Suspect]
     Active Substance: PIRFENIDONE
     Indication: IDIOPATHIC PULMONARY FIBROSIS
     Dosage: ?          OTHER FREQUENCY:SEE B.6(PAGE 2);?
     Route: 048
     Dates: start: 20180601, end: 2021
  10. DILTIAZEM CAP 240MG ER [Concomitant]
  11. GLIPIZIDE EB TAB 5MG [Concomitant]

REACTIONS (1)
  - Death [None]

NARRATIVE: CASE EVENT DATE: 20210901
